FAERS Safety Report 9212417 (Version 1)
Quarter: 2013Q2

REPORT INFORMATION
  Report Type: Spontaneous
  Country: US (occurrence: US)
  Receive Date: 20130404
  Receipt Date: 20130404
  Transmission Date: 20140414
  Serious: No
  Sender: FDA-Public Use
  Company Number: US-AMGEN-USASP2013021554

PATIENT
  Sex: 0

DRUGS (5)
  1. ENBREL [Suspect]
     Indication: PRODUCT USED FOR UNKNOWN INDICATION
     Dosage: UNK
  2. METHOTREXATE [Concomitant]
     Dosage: UNK
  3. HUMIRA [Concomitant]
     Dosage: UNK
  4. TOFACITINIB [Concomitant]
     Dosage: UNK
  5. MELOXICAM [Concomitant]
     Dosage: 7.5 MG, UNK

REACTIONS (7)
  - Musculoskeletal stiffness [Unknown]
  - Pain [Unknown]
  - Headache [Unknown]
  - Pain in extremity [Unknown]
  - Abdominal discomfort [Unknown]
  - Drug effect incomplete [Unknown]
  - Drug ineffective [Unknown]
